FAERS Safety Report 21344586 (Version 1)
Quarter: 2022Q3

REPORT INFORMATION
  Report Type: Spontaneous
  Country: US (occurrence: US)
  Receive Date: 20220916
  Receipt Date: 20220916
  Transmission Date: 20221026
  Serious: No
  Sender: FDA-Public Use
  Company Number: US-NOVEN PHARMACEUTICALS, INC.-2022-NOV-US000253

PATIENT
  Sex: Female

DRUGS (1)
  1. COMBIPATCH [Suspect]
     Active Substance: ESTRADIOL\NORETHINDRONE ACETATE
     Indication: Hormone replacement therapy
     Dosage: 0.05/0.14MG, EVERY 4-5 DAYS
     Route: 062
     Dates: start: 202103

REACTIONS (15)
  - Chills [Recovered/Resolved]
  - Blood pressure decreased [Recovered/Resolved]
  - Feeling abnormal [Not Recovered/Not Resolved]
  - Neck pain [Recovered/Resolved]
  - Illness [Recovered/Resolved]
  - Restlessness [Not Recovered/Not Resolved]
  - Hot flush [Recovered/Resolved]
  - Headache [Not Recovered/Not Resolved]
  - Postmenopausal haemorrhage [Recovered/Resolved]
  - Nervousness [Not Recovered/Not Resolved]
  - Asthenia [Recovered/Resolved]
  - Insomnia [Recovered/Resolved]
  - Dermal absorption impaired [Recovered/Resolved]
  - Inappropriate schedule of product administration [Not Recovered/Not Resolved]
  - Product quality issue [Recovered/Resolved]

NARRATIVE: CASE EVENT DATE: 20210101
